FAERS Safety Report 5355503-2 (Version None)
Quarter: 2007Q2

REPORT INFORMATION
  Report Type: 
  Country: None (occurrence: None)
  Receive Date: 20070613
  Receipt Date: 20070605
  Transmission Date: 20071010
  Serious: Yes (Hospitalization)
  Sender: FDA-Public Use
  Company Number: PHRM2007FR01479

PATIENT
  Age: 68 Year
  Sex: Male
  Weight: 69 kg

DRUGS (6)
  1. GLEEVEC [Suspect]
     Indication: CHRONIC MYELOID LEUKAEMIA
     Dosage: 400 MG, QD
     Route: 048
     Dates: start: 20040401
  2. METOPROLOL TARTRATE [Concomitant]
     Route: 048
  3. KARDEGIC [Concomitant]
     Route: 048
  4. COVERSYL /FRA/ [Concomitant]
  5. ESOMEPRAZOLE MAGNESIUM [Concomitant]
     Dosage: 40 MG, QD
     Route: 048
  6. PLAVIX [Concomitant]

REACTIONS (1)
  - PROSTATIC ADENOMA [None]
